FAERS Safety Report 20662255 (Version 9)
Quarter: 2023Q2

REPORT INFORMATION
  Report Type: Other
  Country: DE (occurrence: None)
  Receive Date: 20220401
  Receipt Date: 20230524
  Transmission Date: 20230721
  Serious: Yes (Hospitalization, Other)
  Sender: FDA-Public Use
  Company Number: DE-ROCHE-2710375

PATIENT
  Age: 37 Year
  Sex: Female

DRUGS (17)
  1. OCREVUS [Suspect]
     Active Substance: OCRELIZUMAB
     Indication: Relapsing-remitting multiple sclerosis
     Dosage: 600 MG 217 DAYS
     Route: 042
     Dates: start: 20201029
  2. OCREVUS [Suspect]
     Active Substance: OCRELIZUMAB
     Dosage: SECOND INITIAL DOSE
     Route: 042
     Dates: start: 20201109
  3. OCREVUS [Suspect]
     Active Substance: OCRELIZUMAB
     Dosage: SECOND INITIAL DOSE
     Route: 042
     Dates: start: 20210608
  4. OCREVUS [Suspect]
     Active Substance: OCRELIZUMAB
     Dosage: THEN 600 MG ONCE IN 292 DAYS
     Route: 042
     Dates: start: 20210817
  5. OCREVUS [Suspect]
     Active Substance: OCRELIZUMAB
     Dosage: 600 MG FREQUENCY: 217 DAYS
     Route: 042
     Dates: start: 20201029
  6. OCREVUS [Suspect]
     Active Substance: OCRELIZUMAB
     Route: 042
  7. CORTISONE [Suspect]
     Active Substance: CORTISONE
     Indication: Premedication
     Route: 065
     Dates: start: 20201119
  8. COMIRNATY [Suspect]
     Active Substance: TOZINAMERAN
     Indication: COVID-19 prophylaxis
     Dosage: SECOND DOSE ON 08/JUN/2021
     Route: 065
     Dates: start: 20210428
  9. PREGABALIN [Concomitant]
     Active Substance: PREGABALIN
     Dates: end: 20211203
  10. IBUPROFEN [Concomitant]
     Active Substance: IBUPROFEN
     Dosage: 1-1-1
  11. FOSTER [Concomitant]
     Active Substance: BECLOMETHASONE\FORMOTEROL
     Dosage: 2 STROKES DAILY
  12. SALBUHEXAL [Concomitant]
     Active Substance: ALBUTEROL
  13. MORPHINE [Concomitant]
     Active Substance: MORPHINE
  14. ROPINIROLE [Concomitant]
     Active Substance: ROPINIROLE
  15. BACLOFEN [Concomitant]
     Active Substance: BACLOFEN
     Dosage: 1-1-1
  16. GABAPENTIN [Concomitant]
     Active Substance: GABAPENTIN
     Dosage: 1-1-1-1
  17. ROPINIROLE [Concomitant]
     Active Substance: ROPINIROLE

REACTIONS (33)
  - Fatigue [Recovered/Resolved]
  - Nausea [Recovered/Resolved]
  - Decreased appetite [Recovered/Resolved]
  - Headache [Recovered/Resolved]
  - Paraesthesia [Recovered/Resolved]
  - Exostosis [Recovering/Resolving]
  - Asthenia [Not Recovered/Not Resolved]
  - Injection site pain [Recovered/Resolved]
  - Pain in extremity [Recovered/Resolved]
  - Initial insomnia [Not Recovered/Not Resolved]
  - Somnolence [Not Recovered/Not Resolved]
  - Hypoaesthesia [Recovering/Resolving]
  - Muscle spasms [Recovering/Resolving]
  - Gait disturbance [Not Recovered/Not Resolved]
  - Drug ineffective [Unknown]
  - COVID-19 [Recovering/Resolving]
  - Osteoarthritis [Recovered/Resolved]
  - Fall [Unknown]
  - Haematoma [Recovered/Resolved]
  - Nail injury [Recovered/Resolved]
  - Sensory disturbance [Not Recovered/Not Resolved]
  - Epilepsy [Recovered/Resolved]
  - Extrasystoles [Not Recovered/Not Resolved]
  - Insomnia [Not Recovered/Not Resolved]
  - Chest discomfort [Recovered/Resolved]
  - Agitation [Not Recovered/Not Resolved]
  - Demyelination [Not Recovered/Not Resolved]
  - Syringomyelia [Not Recovered/Not Resolved]
  - Arthritis [Not Recovered/Not Resolved]
  - Rheumatic disorder [Not Recovered/Not Resolved]
  - Cystitis noninfective [Not Recovered/Not Resolved]
  - Renal pain [Recovering/Resolving]
  - Drug hypersensitivity [Recovering/Resolving]

NARRATIVE: CASE EVENT DATE: 20201029
